FAERS Safety Report 12663433 (Version 1)
Quarter: 2016Q3

REPORT INFORMATION
  Report Type: Spontaneous
  Country: US (occurrence: None)
  Receive Date: 20160817
  Receipt Date: 20160817
  Transmission Date: 20161109
  Serious: Yes (Hospitalization)
  Sender: FDA-Public Use
  Company Number: None

PATIENT
  Age: 82 Year
  Sex: Female
  Weight: 97.4 kg

DRUGS (1)
  1. CEFEPIME, 1 G [Suspect]
     Active Substance: CEFEPIME HYDROCHLORIDE
     Indication: EVIDENCE BASED TREATMENT
     Route: 042
     Dates: start: 20160508, end: 20160512

REACTIONS (6)
  - Eosinophilia [None]
  - Tubulointerstitial nephritis [None]
  - Urine output decreased [None]
  - Body temperature increased [None]
  - Rash maculo-papular [None]
  - Acute kidney injury [None]

NARRATIVE: CASE EVENT DATE: 20160513
